FAERS Safety Report 9890097 (Version 1)
Quarter: 2014Q1

REPORT INFORMATION
  Report Type: Spontaneous
  Country: US (occurrence: US)
  Receive Date: 20140212
  Receipt Date: 20140212
  Transmission Date: 20141002
  Serious: No
  Sender: FDA-Public Use
  Company Number: US-BIOGENIDEC-2014BI011217

PATIENT
  Age: 58 Year
  Sex: Male

DRUGS (6)
  1. TECFIDERA [Suspect]
     Indication: MULTIPLE SCLEROSIS
     Route: 048
  2. BACLOFEN [Concomitant]
  3. FLOMAX [Concomitant]
  4. LEVAQUIN [Concomitant]
  5. MAGNESIUM [Concomitant]
  6. VIT D [Concomitant]

REACTIONS (1)
  - Urinary tract infection [Unknown]
